FAERS Safety Report 6534851-4 (Version None)
Quarter: 2010Q1

REPORT INFORMATION
  Report Type: 
  Country: None (occurrence: None)
  Receive Date: 20100112
  Receipt Date: 20100104
  Transmission Date: 20100710
  Serious: Yes (Hospitalization, Other)
  Sender: FDA-Public Use
  Company Number: PHHO2009IN09671

PATIENT
  Sex: Male

DRUGS (2)
  1. IMATINIB [Suspect]
     Indication: CHRONIC MYELOID LEUKAEMIA
     Dosage: 400 MG, QD
     Route: 048
     Dates: start: 20090130, end: 20090718
  2. DICLOFENAC SODIUM [Concomitant]

REACTIONS (15)
  - ARTHRALGIA [None]
  - BIOPSY BONE MARROW ABNORMAL [None]
  - BLAST CELLS [None]
  - BLAST CRISIS IN MYELOGENOUS LEUKAEMIA [None]
  - BONE LESION [None]
  - BONE MARROW DISORDER [None]
  - BONE MARROW FAILURE [None]
  - CHILLS [None]
  - DECREASED APPETITE [None]
  - DYSSTASIA [None]
  - FIBROSIS [None]
  - GAIT DISTURBANCE [None]
  - GROIN PAIN [None]
  - MALIGNANT NEOPLASM PROGRESSION [None]
  - PYREXIA [None]
